FAERS Safety Report 10418803 (Version 2)
Quarter: 2014Q3

REPORT INFORMATION
  Report Type: Spontaneous
  Country: US (occurrence: US)
  Receive Date: 20140829
  Receipt Date: 20140829
  Transmission Date: 20150326
  Serious: No
  Sender: FDA-Public Use
  Company Number: US-MYLAN-2014S1007516

PATIENT
  Age: 85 Year
  Sex: Female
  Weight: 52.16 kg

DRUGS (8)
  1. CLONIDINE TRANSDERMAL SYSTEM [Suspect]
     Active Substance: CLONIDINE
     Indication: BLOOD PRESSURE INCREASED
     Dosage: .1 MG,QD
     Route: 062
     Dates: start: 20130711, end: 20140408
  2. CENTRUM SILVER [Concomitant]
     Active Substance: VITAMINS
     Dosage: 1 DF,QD
  3. PRAVASTATIN [Concomitant]
     Active Substance: PRAVASTATIN\PRAVASTATIN SODIUM
     Dosage: 20 MG,QOD
  4. LANSOPRAZOLE. [Concomitant]
     Active Substance: LANSOPRAZOLE
     Dosage: 30 MG,BID
  5. COZAAR [Concomitant]
     Active Substance: LOSARTAN POTASSIUM
     Indication: HYPERTENSION
     Dosage: 100 MG,QD
     Route: 048
  6. ASPIRIN. [Concomitant]
     Active Substance: ASPIRIN
     Dosage: 162 MG,QD
  7. NITROGLYCERIN TRANSDERMAL SYSTEM [Concomitant]
     Active Substance: NITROGLYCERIN
     Dosage: .4 MG,QD
     Route: 062
  8. METOPROLOL [Concomitant]
     Active Substance: METOPROLOL
     Indication: HYPERTENSION
     Dosage: 100 MG,QD
     Route: 048

REACTIONS (2)
  - Application site rash [Not Recovered/Not Resolved]
  - Application site pruritus [Not Recovered/Not Resolved]

NARRATIVE: CASE EVENT DATE: 201403
